FAERS Safety Report 8815750 (Version 2)
Quarter: 2012Q4

REPORT INFORMATION
  Report Type: 
  Country: AU (occurrence: AU)
  Receive Date: 20120928
  Receipt Date: 20121102
  Transmission Date: 20130627
  Serious: Yes (Other)
  Sender: FDA-Public Use
  Company Number: AU-B.I. PHARMACEUTICALS,INC./RIDGEFIELD-2012-AU-01650AU

PATIENT
  Age: 67 Year
  Sex: Male

DRUGS (2)
  1. PRADAXA [Suspect]
  2. PERINDOPRIL [Concomitant]
     Indication: HYPERTENSION

REACTIONS (6)
  - Cerebral artery occlusion [Recovered/Resolved with Sequelae]
  - Peripheral arterial occlusive disease [Recovered/Resolved]
  - Hypertension [Unknown]
  - Aphasia [Not Recovered/Not Resolved]
  - Hemiparesis [Not Recovered/Not Resolved]
  - Haemorrhagic transformation stroke [Unknown]
